FAERS Safety Report 9858717 (Version 2)
Quarter: 2014Q1

REPORT INFORMATION
  Report Type: Spontaneous
  Country: CA (occurrence: CA)
  Receive Date: 20140131
  Receipt Date: 20140204
  Transmission Date: 20141002
  Serious: Yes (Other)
  Sender: FDA-Public Use
  Company Number: CA-PFIZER INC-2014026764

PATIENT
  Age: 71 Year
  Sex: Male
  Weight: 88.44 kg

DRUGS (7)
  1. LYRICA [Suspect]
     Indication: PROSTATOMEGALY
     Dosage: 400 MG, 2X/DAY
     Route: 048
     Dates: start: 2004
  2. LYRICA [Suspect]
     Indication: FIBROMYALGIA
     Dosage: 400 MG, 2X/DAY
     Route: 048
     Dates: end: 201306
  3. LYRICA [Suspect]
     Dosage: 400 MG, 2X/DAY
     Route: 048
     Dates: start: 201312
  4. SUMATRIPTAN [Concomitant]
     Indication: MIGRAINE
     Dosage: UNK
  5. ARTHROTEC [Concomitant]
     Indication: ARTHRITIS
     Dosage: UNK
  6. MESTINON [Concomitant]
     Indication: DYSPHAGIA
     Dosage: UNK
  7. PROPANOLOL [Concomitant]
     Indication: CARDIAC DISORDER
     Dosage: UNK

REACTIONS (8)
  - Prostatomegaly [Unknown]
  - Urine flow decreased [Unknown]
  - Off label use [Unknown]
  - Pre-existing condition improved [Unknown]
  - Therapeutic response unexpected [Unknown]
  - Vitamin D deficiency [Unknown]
  - Vitamin B12 deficiency [Unknown]
  - Blood cholesterol abnormal [Unknown]
